FAERS Safety Report 10177045 (Version 1)
Quarter: 2014Q2

REPORT INFORMATION
  Report Type: Spontaneous
  Country: US (occurrence: None)
  Receive Date: 20140515
  Receipt Date: 20140515
  Transmission Date: 20141212
  Serious: No
  Sender: FDA-Public Use
  Company Number: None

PATIENT
  Age: 53 Year
  Sex: Female
  Weight: 79.38 kg

DRUGS (1)
  1. XELODA [Suspect]
     Indication: CHOLANGIOCARCINOMA
     Route: 048
     Dates: start: 20140318, end: 20140507

REACTIONS (2)
  - Treatment failure [None]
  - Disease progression [None]
